FAERS Safety Report 15107143 (Version 3)
Quarter: 2018Q3

REPORT INFORMATION
  Report Type: Spontaneous
  Country: US (occurrence: US)
  Receive Date: 20180704
  Receipt Date: 20180806
  Transmission Date: 20181010
  Serious: Yes (Other)
  Sender: FDA-Public Use
  Company Number: US-PFIZER INC-2018267830

PATIENT
  Age: 72 Year
  Sex: Female

DRUGS (16)
  1. LYRICA [Suspect]
     Active Substance: PREGABALIN
     Dosage: 75 MG, 2X/DAY
     Route: 048
  2. HYDROCODONE?ACETAMINOPHEN [Concomitant]
     Active Substance: ACETAMINOPHEN\HYDROCODONE
     Dosage: 1 DF, AS NEEDED (HYDROCODONE?5/ACETAMINOPHEN?325) (TWICE A DAY AS NEEDED., 30 DAYS, 0 REFILLS)
  3. LISINOPRIL?HYDROCHLOROTHIAZIDE [Concomitant]
     Active Substance: HYDROCHLOROTHIAZIDE\LISINOPRIL
     Dosage: 1 DF, DAILY (LISINOPRIL?10/HYDROCHLOROTHIAZIDE?12.5) (90 DAYS, 3 REFILLS)
  4. LYRICA [Suspect]
     Active Substance: PREGABALIN
     Dosage: 150 MG, 2X/DAY
     Route: 048
  5. ASPIRIN. [Concomitant]
     Active Substance: ASPIRIN
     Dosage: 81 MG, DAILY (30 DAYS, 0 REFILLS)
  6. CELEXA [Concomitant]
     Active Substance: CITALOPRAM HYDROBROMIDE
     Dosage: 20 MG, DAILY (90 DAYS, 3 REFILLS)
     Route: 048
  7. DICLOFENAC SODIUM. [Concomitant]
     Active Substance: DICLOFENAC SODIUM
     Dosage: 75 MG, 2X/DAY (90 DAYS, 3 REFILLS)
  8. FUROSEMIDE. [Concomitant]
     Active Substance: FUROSEMIDE
     Dosage: 20 MG, 1X/DAY (DAILY, IN A.M., 90 DAYS, 3 REFILLS)
     Route: 048
  9. IPRATROPIUM?ALBUTEROL [Concomitant]
     Active Substance: ALBUTEROL\IPRATROPIUM
     Dosage: UNK (IPRATROPIUM?0.5/ALBUTEROL?3) (0.5?2.5 (3) MG/3ML SOLN, 0 DAYS, 0 REFILLS)
  10. MSM [Concomitant]
     Active Substance: DIMETHYL SULFONE
     Dosage: 1500 MG, 2X/DAY (30 DAYS, 0 REFILLS)
  11. OMEPRAZOLE. [Concomitant]
     Active Substance: OMEPRAZOLE
     Dosage: 20 MG, 2X/DAY (90 DAYS, 2 REFILLS)
     Route: 048
  12. AMLODIPINE BESYLATE. [Concomitant]
     Active Substance: AMLODIPINE BESYLATE
     Dosage: 10 MG, DAILY (90 DAYS, 3 REFILLS)
     Route: 048
  13. SYNTHROID [Concomitant]
     Active Substance: LEVOTHYROXINE SODIUM
     Dosage: 50 UG, DAILY (90 DAYS, 3 REFILLS)
  14. CYCLOBENZAPRINE HCL [Concomitant]
     Active Substance: CYCLOBENZAPRINE HYDROCHLORIDE
     Indication: MUSCLE SPASMS
     Dosage: 10 MG, AS NEEDED (THREE TIMES A DAY, AS NEEDED FOR MUSCLE SPASMS., 90 DAYS, 3 REFILLS)
  15. LYRICA [Suspect]
     Active Substance: PREGABALIN
     Dosage: 50 MG, 3X/DAY
     Route: 048
  16. ALBUTEROL SULFATE. [Concomitant]
     Active Substance: ALBUTEROL SULFATE
     Dosage: UNK UNK, AS NEEDED (0.083% NEBU, AS DIRECTED 1 VIAL PER NEB QID/PRN, 30 DAYS, 3 REFILLS)

REACTIONS (17)
  - Fall [Recovered/Resolved]
  - Back disorder [Unknown]
  - Pain [Recovering/Resolving]
  - Vitreous floaters [Unknown]
  - Altered visual depth perception [Unknown]
  - Dizziness [Recovered/Resolved]
  - Movement disorder [Recovered/Resolved]
  - Eye contusion [Unknown]
  - Epistaxis [Recovered/Resolved]
  - Musculoskeletal stiffness [Recovered/Resolved]
  - Joint injury [Recovered/Resolved]
  - Glaucoma [Unknown]
  - Pain in extremity [Unknown]
  - Skin abrasion [Unknown]
  - Myopia [Unknown]
  - Visual acuity reduced [Unknown]
  - Feeling abnormal [Unknown]
